FAERS Safety Report 24624126 (Version 1)
Quarter: 2024Q4

REPORT INFORMATION
  Report Type: Spontaneous
  Country: US (occurrence: None)
  Receive Date: 20241115
  Receipt Date: 20241115
  Transmission Date: 20250115
  Serious: No
  Sender: Public
  Company Number: None

PATIENT
  Age: 7 Year
  Sex: Male

DRUGS (1)
  1. SUMATRIPTAN SUCCINATE [Suspect]
     Active Substance: SUMATRIPTAN SUCCINATE
     Indication: Migraine
     Dosage: 50.00 MG AS NEEDED ORAL?
     Route: 048
     Dates: end: 20240912

REACTIONS (3)
  - Angioedema [None]
  - Swollen tongue [None]
  - Throat tightness [None]

NARRATIVE: CASE EVENT DATE: 20060101
